FAERS Safety Report 8227810-7 (Version None)
Quarter: 2012Q1

REPORT INFORMATION
  Report Type: 
  Country: None (occurrence: None)
  Receive Date: 20120322
  Receipt Date: 20120312
  Transmission Date: 20120608
  Serious: Yes (Other)
  Sender: FDA-Public Use
  Company Number: US-ROCHE-1048408

PATIENT
  Sex: Female

DRUGS (2)
  1. ZELBORAF [Suspect]
     Indication: NEOPLASM MALIGNANT
  2. ZELBORAF [Suspect]
     Indication: MALIGNANT MELANOMA

REACTIONS (3)
  - UPPER EXTREMITY MASS [None]
  - DRUG INEFFECTIVE [None]
  - NEOPLASM [None]
